FAERS Safety Report 5906965-0 (Version None)
Quarter: 2008Q4

REPORT INFORMATION
  Report Type: 
  Country: None (occurrence: None)
  Receive Date: 20081003
  Receipt Date: 20080922
  Transmission Date: 20090506
  Serious: Yes (Other)
  Sender: FDA-Public Use
  Company Number: US-JNJFOC-20080702502

PATIENT
  Sex: Female
  Weight: 58.97 kg

DRUGS (13)
  1. TOPAMAX [Suspect]
  2. TOPAMAX [Suspect]
     Indication: DRUG THERAPY
  3. TOPROL-XL [Concomitant]
     Indication: BLOOD PRESSURE
  4. ZOLOFT [Concomitant]
     Indication: AFFECTIVE DISORDER
  5. NORVASC [Concomitant]
     Indication: BLOOD PRESSURE
  6. FISH OIL [Concomitant]
     Indication: DRUG USE FOR UNKNOWN INDICATION
  7. FLONASE [Concomitant]
     Indication: DRUG USE FOR UNKNOWN INDICATION
  8. KLONOPIN [Concomitant]
     Indication: DRUG USE FOR UNKNOWN INDICATION
  9. MIRAPEX [Concomitant]
     Indication: DRUG USE FOR UNKNOWN INDICATION
  10. MULTI-VITAMIN [Concomitant]
     Indication: DRUG USE FOR UNKNOWN INDICATION
  11. PROTONIX [Concomitant]
     Indication: DRUG USE FOR UNKNOWN INDICATION
  12. SPIRONOLATONE [Concomitant]
     Indication: DRUG USE FOR UNKNOWN INDICATION
  13. CLONAZEPAM [Concomitant]
     Indication: DRUG USE FOR UNKNOWN INDICATION

REACTIONS (7)
  - CLOSTRIDIAL INFECTION [None]
  - DEAFNESS UNILATERAL [None]
  - DIVERTICULITIS [None]
  - EAR PAIN [None]
  - MEMORY IMPAIRMENT [None]
  - NERVE INJURY [None]
  - TINNITUS [None]
